FAERS Safety Report 23802643 (Version 1)
Quarter: 2024Q2

REPORT INFORMATION
  Report Type: Other
  Country: EG (occurrence: None)
  Receive Date: 20240501
  Receipt Date: 20240501
  Transmission Date: 20240715
  Serious: Yes (Disabling)
  Sender: FDA-Public Use
  Company Number: EG-ROCHE-3550672

PATIENT
  Age: 45 Year
  Sex: Female
  Weight: 85 kg

DRUGS (1)
  1. OCREVUS [Suspect]
     Active Substance: OCRELIZUMAB
     Indication: Multiple sclerosis
     Route: 042
     Dates: start: 20211208, end: 20211222

REACTIONS (2)
  - Multiple sclerosis [Unknown]
  - Gait inability [Unknown]
